FAERS Safety Report 7353648-9 (Version None)
Quarter: 2011Q1

REPORT INFORMATION
  Report Type: 
  Country: None (occurrence: None)
  Receive Date: 20110315
  Receipt Date: 20110310
  Transmission Date: 20110831
  Serious: Yes (Hospitalization)
  Sender: FDA-Public Use
  Company Number: IE-ABBOTT-11P-229-0710613-00

PATIENT
  Age: 15 Month
  Sex: Male

DRUGS (2)
  1. EPILIM CHRONOSPHERE [Suspect]
     Indication: CONVULSION
     Route: 048
     Dates: start: 20110130, end: 20110131
  2. EPILIM CHRONOSPHERE [Suspect]
     Route: 048

REACTIONS (3)
  - ACCIDENTAL OVERDOSE [None]
  - SOMNOLENCE [None]
  - DRUG LEVEL ABOVE THERAPEUTIC [None]
